FAERS Safety Report 8432435-4 (Version None)
Quarter: 2012Q2

REPORT INFORMATION
  Report Type: 
  Country: None (occurrence: None)
  Receive Date: 20120613
  Receipt Date: 20120606
  Transmission Date: 20120825
  Serious: Yes (Other)
  Sender: FDA-Public Use
  Company Number: US-ELI_LILLY_AND_COMPANY-US201206002151

PATIENT
  Sex: Male

DRUGS (3)
  1. LISINOPRIL [Suspect]
     Dosage: UNK, UNKNOWN
  2. LUNESTA [Suspect]
     Dosage: UNK, UNKNOWN
  3. EFFIENT [Suspect]
     Indication: STENT PLACEMENT
     Dosage: 10 MG, QD
     Dates: start: 20110301

REACTIONS (9)
  - BLOOD PRESSURE ABNORMAL [None]
  - GOUT [None]
  - ULCER [None]
  - CONTUSION [None]
  - INJURY [None]
  - STENT PLACEMENT [None]
  - DYSPNOEA [None]
  - IRRITABILITY [None]
  - FEELING HOT [None]
